FAERS Safety Report 8104610-X (Version None)
Quarter: 2012Q1

REPORT INFORMATION
  Report Type: 
  Country: None (occurrence: None)
  Receive Date: 20120130
  Receipt Date: 20120120
  Transmission Date: 20120608
  Serious: Yes (Other)
  Sender: FDA-Public Use
  Company Number: PHHY2012BR005731

PATIENT
  Sex: Male
  Weight: 73 kg

DRUGS (4)
  1. FORMOTEROL FUMARATE [Suspect]
  2. FORMOTEROL FUMARATE [Suspect]
     Indication: ASTHMA
  3. FORMOTEROL FUMARATE [Suspect]
  4. BECLOMETHASONE DIPROPIONATE [Suspect]
     Indication: ASTHMA

REACTIONS (4)
  - NASOPHARYNGITIS [None]
  - MOOD ALTERED [None]
  - SOMNOLENCE [None]
  - OBSTRUCTIVE AIRWAYS DISORDER [None]
